FAERS Safety Report 14874187 (Version 1)
Quarter: 2018Q2

REPORT INFORMATION
  Report Type: Spontaneous
  Country: US (occurrence: US)
  Receive Date: 20180510
  Receipt Date: 20180510
  Transmission Date: 20180711
  Serious: No
  Sender: FDA-Public Use
  Company Number: US-GLAXOSMITHKLINE-US2018078738

PATIENT
  Age: 74 Year
  Sex: Female

DRUGS (2)
  1. BREO ELLIPTA [Suspect]
     Active Substance: FLUTICASONE FUROATE\VILANTEROL TRIFENATATE
     Indication: ASTHMA
     Dosage: 1 PUFF(S), QD
     Dates: start: 2017
  2. TRELEGY ELLIPTA [Suspect]
     Active Substance: FLUTICASONE FUROATE\UMECLIDINIUM BROMIDE\VILANTEROL TRIFENATATE
     Indication: ASTHMA
     Dosage: 1 PUFF(S), QD
     Dates: start: 20180424

REACTIONS (6)
  - Dry mouth [Unknown]
  - Drug effect decreased [Unknown]
  - Cough [Not Recovered/Not Resolved]
  - Dysgeusia [Unknown]
  - Product quality issue [Unknown]
  - Lower respiratory tract congestion [Recovering/Resolving]

NARRATIVE: CASE EVENT DATE: 20180424
